FAERS Safety Report 21842960 (Version 1)
Quarter: 2023Q1

REPORT INFORMATION
  Report Type: Spontaneous
  Country: FR (occurrence: FR)
  Receive Date: 20230110
  Receipt Date: 20230110
  Transmission Date: 20230418
  Serious: Yes (Death, Other)
  Sender: FDA-Public Use
  Company Number: None

PATIENT
  Age: 60 Year
  Sex: Female
  Weight: 70 kg

DRUGS (6)
  1. LOVENOX [Suspect]
     Active Substance: ENOXAPARIN SODIUM
     Indication: Thrombolysis
     Dosage: UNK, 3000IU IV + 7000IU SC /12H
     Route: 042
     Dates: start: 20210303, end: 20210303
  2. PLAVIX [Suspect]
     Active Substance: CLOPIDOGREL BISULFATE
     Indication: Thrombolysis
     Dosage: 300 MG QD
     Route: 048
     Dates: start: 20210303, end: 20210303
  3. ASPIRIN DL-LYSINE [Suspect]
     Active Substance: ASPIRIN DL-LYSINE
     Indication: Thrombolysis
     Dosage: 250 MG QD
     Route: 042
     Dates: start: 20210303, end: 20210303
  4. METALYSE [Suspect]
     Active Substance: TENECTEPLASE
     Indication: Thrombolysis
     Dosage: 7000 IU
     Route: 042
     Dates: start: 20210303, end: 20210303
  5. ETIFOXINE [Concomitant]
     Active Substance: ETIFOXINE
     Dosage: UNK
  6. ESTRADIOL [Concomitant]
     Active Substance: ESTRADIOL
     Dosage: UNK

REACTIONS (2)
  - Coma [Fatal]
  - Cerebral haematoma [Fatal]

NARRATIVE: CASE EVENT DATE: 20210303
